FAERS Safety Report 12243364 (Version 2)
Quarter: 2016Q2

REPORT INFORMATION
  Report Type: Spontaneous
  Country: US (occurrence: US)
  Receive Date: 20160406
  Receipt Date: 20160428
  Transmission Date: 20160815
  Serious: No
  Sender: FDA-Public Use
  Company Number: US-ROXANE LABORATORIES, INC.-2016-RO-00683RO

PATIENT
  Sex: Female

DRUGS (1)
  1. BUTORPHANOL TARTRATE. [Suspect]
     Active Substance: BUTORPHANOL TARTRATE
     Indication: HEADACHE
     Route: 045

REACTIONS (2)
  - Product quality issue [Unknown]
  - Drug ineffective [Unknown]
